FAERS Safety Report 6590702-3 (Version None)
Quarter: 2010Q1

REPORT INFORMATION
  Report Type: 
  Country: None (occurrence: None)
  Receive Date: 20100219
  Receipt Date: 20100209
  Transmission Date: 20100710
  Serious: Yes (Other)
  Sender: FDA-Public Use
  Company Number: GB-JNJFOC-20081005701

PATIENT
  Age: 14 Year
  Sex: Female
  Weight: 55 kg

DRUGS (7)
  1. REMICADE [Suspect]
     Indication: COLITIS ULCERATIVE
     Dosage: TOTAL OF 2 INFUSIONS GIVEN
     Route: 042
  2. REMICADE [Suspect]
     Route: 042
  3. PREDNISOLONE [Concomitant]
     Indication: COLITIS ULCERATIVE
     Route: 048
  4. 5-ASA [Concomitant]
  5. FERROUS SULFATE TAB [Concomitant]
     Indication: IRON DEFICIENCY ANAEMIA
     Route: 048
  6. MESALAZINE [Concomitant]
  7. LECITHIN [Concomitant]

REACTIONS (1)
  - GRAND MAL CONVULSION [None]
